FAERS Safety Report 4734430-5 (Version None)
Quarter: 2005Q3

REPORT INFORMATION
  Report Type: 
  Country: None (occurrence: None)
  Receive Date: 20050804
  Receipt Date: 20050729
  Transmission Date: 20060218
  Serious: Yes (Hospitalization)
  Sender: FDA-Public Use
  Company Number: US-BRISTOL-MYERS SQUIBB COMPANY-13056825

PATIENT
  Age: 62 Year
  Sex: Male
  Weight: 90 kg

DRUGS (8)
  1. CISPLATIN [Suspect]
     Indication: OESOPHAGEAL CANCER METASTATIC
     Route: 042
     Dates: start: 20050524, end: 20050531
  2. IRINOTECAN HCL [Suspect]
     Indication: OESOPHAGEAL CANCER METASTATIC
     Route: 042
     Dates: start: 20050524, end: 20050531
  3. CAPECITABINE [Suspect]
     Indication: OESOPHAGEAL CANCER METASTATIC
     Route: 048
     Dates: start: 20050525, end: 20050705
  4. ATIVAN [Concomitant]
  5. COMPAZINE [Concomitant]
  6. PROTONIX [Concomitant]
  7. ZOFRAN [Concomitant]
  8. DECADRON [Concomitant]

REACTIONS (7)
  - DEHYDRATION [None]
  - DIARRHOEA [None]
  - FATIGUE [None]
  - FEBRILE NEUTROPENIA [None]
  - GASTROINTESTINAL HAEMORRHAGE [None]
  - ILEUS [None]
  - PYREXIA [None]
